FAERS Safety Report 4712671-0 (Version None)
Quarter: 2005Q3

REPORT INFORMATION
  Report Type: 
  Country: None (occurrence: None)
  Receive Date: 20050706
  Receipt Date: 20050610
  Transmission Date: 20060218
  Serious: Yes (Hospitalization, Other)
  Sender: FDA-Public Use
  Company Number: US-2005-004335

PATIENT
  Age: 50 Year
  Sex: Female

DRUGS (1)
  1. CAMPATH [Suspect]
     Indication: MYCOSIS FUNGOIDES
     Dosage: 6 WEEK COURSE, INTRAVENOUS
     Route: 042
     Dates: start: 20040401, end: 20040501

REACTIONS (6)
  - ABDOMINAL DISCOMFORT [None]
  - BRONCHITIS [None]
  - CARDIAC INFECTION [None]
  - CATHETER RELATED INFECTION [None]
  - DRUG ERUPTION [None]
  - NEOPLASM RECURRENCE [None]
